FAERS Safety Report 16979758 (Version 3)
Quarter: 2020Q1

REPORT INFORMATION
  Report Type: Spontaneous
  Country: US (occurrence: US)
  Receive Date: 20191031
  Receipt Date: 20200227
  Transmission Date: 20200409
  Serious: Yes (Hospitalization, Other)
  Sender: FDA-Public Use
  Company Number: US-GLAXOSMITHKLINE-US2019GSK196677

PATIENT
  Sex: Male

DRUGS (1)
  1. PREVACID [Suspect]
     Active Substance: LANSOPRAZOLE
     Indication: GASTROOESOPHAGEAL REFLUX DISEASE
     Dosage: 15 MG, QD
     Route: 065

REACTIONS (17)
  - Nephrostomy [Unknown]
  - Hypertensive nephropathy [Unknown]
  - Acute kidney injury [Unknown]
  - Hydronephrosis [Unknown]
  - Renal failure [Unknown]
  - Haematuria [Unknown]
  - Nephrolithiasis [Unknown]
  - Renal impairment [Unknown]
  - Dysuria [Unknown]
  - Calculus urinary [Unknown]
  - Chronic kidney disease [Unknown]
  - Nephritis [Unknown]
  - Urinary tract obstruction [Unknown]
  - Urinary hesitation [Unknown]
  - Lithotripsy [Unknown]
  - Renal atrophy [Unknown]
  - Ureterolithiasis [Unknown]
